FAERS Safety Report 19787241 (Version 1)
Quarter: 2021Q3

REPORT INFORMATION
  Report Type: Report from Study
  Country: GB (occurrence: GB)
  Receive Date: 20210903
  Receipt Date: 20210903
  Transmission Date: 20211014
  Serious: Yes (Hospitalization)
  Sender: FDA-Public Use
  Company Number: GB-TEVA-2021-GB-1947779

PATIENT
  Weight: 73.8 kg

DRUGS (8)
  1. DOCUSATE SODIUM. [Concomitant]
     Active Substance: DOCUSATE SODIUM
     Indication: CONSTIPATION
     Dosage: 200 MILLIGRAM DAILY;
     Route: 048
     Dates: start: 20210511
  2. DEXAMETHASONE SODIUM PHOSPHATE. [Suspect]
     Active Substance: DEXAMETHASONE SODIUM PHOSPHATE
     Indication: METASTASES TO CENTRAL NERVOUS SYSTEM
     Dosage: 8 MILLIGRAM DAILY;
     Route: 048
     Dates: start: 20210511, end: 20210810
  3. LANSOPRAZOLE. [Concomitant]
     Active Substance: LANSOPRAZOLE
     Indication: PROPHYLAXIS
     Dosage: 30 MILLIGRAM DAILY;
     Route: 048
     Dates: start: 20210511
  4. CLOTRIMAZOLE. [Concomitant]
     Active Substance: CLOTRIMAZOLE
     Indication: RASH
     Dosage: 1 PPL, AS NEEDED, 1 DOSAGE FORMS
     Route: 048
     Dates: start: 2020
  5. IBUPROFEN. [Concomitant]
     Active Substance: IBUPROFEN
     Indication: MUSCULOSKELETAL DISCOMFORT
     Dosage: 1200 MILLIGRAM DAILY;
     Route: 048
     Dates: start: 20200419
  6. CRIZOTINIB [Suspect]
     Active Substance: CRIZOTINIB
     Dosage: 500 MILLIGRAM DAILY;
     Route: 048
     Dates: start: 20190510, end: 20210810
  7. SENNA [Concomitant]
     Active Substance: SENNA LEAF\SENNOSIDES\SENNOSIDES A AND B
     Indication: CONSTIPATION
     Dosage: 7.5 MILLIGRAM DAILY;
     Route: 048
     Dates: start: 20210511
  8. PARACETAMOL [Concomitant]
     Active Substance: ACETAMINOPHEN
     Indication: HEADACHE
     Dosage: 4 GRAM DAILY;
     Route: 048
     Dates: start: 20210704

REACTIONS (4)
  - Oedema peripheral [Not Recovered/Not Resolved]
  - Dyspnoea [Not Recovered/Not Resolved]
  - Headache [Not Recovered/Not Resolved]
  - Swelling face [Not Recovered/Not Resolved]
